FAERS Safety Report 8567866-5 (Version None)
Quarter: 2012Q3

REPORT INFORMATION
  Report Type: 
  Country: None (occurrence: None)
  Receive Date: 20120803
  Receipt Date: 20111208
  Transmission Date: 20120928
  Serious: No
  Sender: FDA-Public Use
  Company Number: US-BRISTOL-MYERS SQUIBB COMPANY-16120719

PATIENT
  Age: 65 Year
  Sex: Female
  Weight: 66 kg

DRUGS (1)
  1. GLUCOVANCE [Suspect]
     Indication: TYPE 2 DIABETES MELLITUS
     Dosage: THERAPY FROM:20 YEARS AGO  1DF:2 TABS/D INTERRUPTED AND RESTARTED ON 29SEP11

REACTIONS (4)
  - DRY EYE [None]
  - HYPOAESTHESIA ORAL [None]
  - ABNORMAL SENSATION IN EYE [None]
  - PROTEIN URINE PRESENT [None]
